FAERS Safety Report 19687821 (Version 1)
Quarter: 2021Q3

REPORT INFORMATION
  Report Type: Spontaneous
  Country: US (occurrence: US)
  Receive Date: 20210812
  Receipt Date: 20210812
  Transmission Date: 20211014
  Serious: No
  Sender: FDA-Public Use
  Company Number: US-CADILA HEALTHCARE LIMITED-US-ZYDUS-067986

PATIENT

DRUGS (1)
  1. SPIRONOLACTONE 25 MILIGRAM TABLET [Suspect]
     Active Substance: SPIRONOLACTONE
     Indication: PRODUCT USED FOR UNKNOWN INDICATION
     Dosage: 25 MILLIGRAM

REACTIONS (3)
  - Epigastric discomfort [Unknown]
  - Food intolerance [Unknown]
  - Product substitution [Unknown]

NARRATIVE: CASE EVENT DATE: 2021
